FAERS Safety Report 17833699 (Version 1)
Quarter: 2020Q2

REPORT INFORMATION
  Report Type: Spontaneous
  Country: US (occurrence: US)
  Receive Date: 20200527
  Receipt Date: 20200527
  Transmission Date: 20200714
  Serious: Yes (Hospitalization)
  Sender: FDA-Public Use
  Company Number: None

PATIENT
  Age: 14 Year
  Sex: Male

DRUGS (13)
  1. BACTRIM DS [Concomitant]
     Active Substance: SULFAMETHOXAZOLE\TRIMETHOPRIM
  2. ERGOCALCIFER [Concomitant]
  3. MAGNESIUM OX [Concomitant]
  4. ACYCLOVIR. [Concomitant]
     Active Substance: ACYCLOVIR
  5. ZOFRAN [Concomitant]
     Active Substance: ONDANSETRON HYDROCHLORIDE
  6. TACROLIMUS. [Suspect]
     Active Substance: TACROLIMUS
     Indication: LIVER TRANSPLANT
     Route: 048
     Dates: start: 20200204
  7. AQUADEKS [Concomitant]
     Active Substance: MINERALS\VITAMINS
  8. NYSTATIN. [Concomitant]
     Active Substance: NYSTATIN
  9. FAMOTIDINE. [Concomitant]
     Active Substance: FAMOTIDINE
  10. MELATONIN [Concomitant]
     Active Substance: MELATONIN
  11. MYCOPHENOLATE [Suspect]
     Active Substance: MYCOPHENOLIC ACID
     Indication: LIVER TRANSPLANT
     Route: 048
     Dates: start: 20200204
  12. ASPIRIN. [Concomitant]
     Active Substance: ASPIRIN
  13. MULTIPLE VIT [Concomitant]

REACTIONS (2)
  - Fall [None]
  - Splenic injury [None]

NARRATIVE: CASE EVENT DATE: 20200430
